FAERS Safety Report 11291758 (Version 3)
Quarter: 2015Q3

REPORT INFORMATION
  Report Type: Spontaneous
  Country: JP (occurrence: JP)
  Receive Date: 20150722
  Receipt Date: 20150917
  Transmission Date: 20151125
  Serious: Yes (Other)
  Sender: FDA-Public Use
  Company Number: JP-PFIZER INC-2015238000

PATIENT
  Age: 46 Year
  Sex: Female

DRUGS (19)
  1. ADMAC DISPO [Concomitant]
     Indication: PERIARTHRITIS
     Dosage: 2.5 ML, MONTHLY
     Route: 014
     Dates: start: 20150310, end: 20150519
  2. NEUROTROPIN [Concomitant]
     Active Substance: NEUROTROPIN
     Indication: BACK PAIN
     Dosage: 3 ML, MONTHLY
     Route: 042
     Dates: start: 20130820
  3. TRAMAL OD [Concomitant]
     Active Substance: TRAMADOL
     Indication: PAIN
     Dosage: 50 MG, 4X/DAY
     Route: 048
     Dates: start: 20141007
  4. ALLEGRA [Concomitant]
     Active Substance: FEXOFENADINE HYDROCHLORIDE
     Indication: RHINITIS ALLERGIC
     Dosage: 60 MG, 2X/DAY
     Route: 048
     Dates: start: 20130205
  5. CYMBALTA [Concomitant]
     Active Substance: DULOXETINE HYDROCHLORIDE
     Indication: PAIN
     Dosage: 20 MG, 1X/DAY
     Route: 048
     Dates: start: 20140617
  6. SALAGEN [Concomitant]
     Active Substance: PILOCARPINE HYDROCHLORIDE
     Indication: DRY MOUTH
     Dosage: 5 MG, 3X/DAY
     Route: 048
     Dates: start: 20100406
  7. KENACORT A [Concomitant]
     Indication: PERIARTHRITIS
     Dosage: 40 MG, MONTHLY
     Route: 014
     Dates: start: 20150310, end: 20150519
  8. MOHRUS L [Concomitant]
     Active Substance: KETOPROFEN
     Indication: BACK PAIN
     Dosage: 40 MG, UNK
     Route: 062
     Dates: start: 20150203
  9. TERNELIN [Concomitant]
     Active Substance: TIZANIDINE
     Indication: PAIN
     Dosage: 1 MG, 1X/DAY BEFORE SLEEP
     Route: 048
     Dates: start: 20131112
  10. GABAPEN [Concomitant]
     Active Substance: GABAPENTIN
     Indication: PAIN
     Dosage: 400 MG, 3X/DAY
     Route: 048
     Dates: start: 20131112
  11. PROCAINE HYDROCHLORIDE [Concomitant]
     Active Substance: PROCAINE HYDROCHLORIDE
     Indication: NECK PAIN
  12. AZULFIDINE EN-TABS [Suspect]
     Active Substance: SULFASALAZINE
     Indication: PAIN
     Dosage: 1 DF, 3X/DAY
     Route: 048
     Dates: start: 20150310, end: 20150519
  13. AZULFIDINE EN-TABS [Suspect]
     Active Substance: SULFASALAZINE
     Indication: PERIARTHRITIS
  14. HUMIRA [Concomitant]
     Active Substance: ADALIMUMAB
     Indication: PAIN
     Dosage: 40 MG, MONTHLY
     Route: 058
     Dates: start: 20140107
  15. PREDONINE [Concomitant]
     Active Substance: PREDNISOLONE\PREDNISOLONE ACETATE\PREDNISOLONE SODIUM SUCCINATE
     Indication: PERIARTHRITIS
  16. PREDONINE [Concomitant]
     Active Substance: PREDNISOLONE\PREDNISOLONE ACETATE\PREDNISOLONE SODIUM SUCCINATE
     Indication: PAIN
     Dosage: 5 MG, 1X/DAY
     Route: 048
     Dates: start: 20150310, end: 20150414
  17. PARIET [Concomitant]
     Active Substance: RABEPRAZOLE SODIUM
     Indication: GASTROOESOPHAGEAL REFLUX DISEASE
     Dosage: 10 MG, 1X/DAY
     Route: 048
     Dates: start: 20100824
  18. REGNITE [Concomitant]
     Active Substance: GABAPENTIN ENACARBIL
     Indication: RESTLESS LEGS SYNDROME
     Dosage: 600 MG (300 MG TABLET X 2), 1X/DAY
     Route: 048
     Dates: start: 20140904
  19. PROCAINE HYDROCHLORIDE [Concomitant]
     Active Substance: PROCAINE HYDROCHLORIDE
     Indication: BACK PAIN
     Dosage: 1 ML, MONTHLY
     Route: 042
     Dates: start: 20130820

REACTIONS (1)
  - Retinal haemorrhage [Recovering/Resolving]

NARRATIVE: CASE EVENT DATE: 201503
